FAERS Safety Report 19907655 (Version 6)
Quarter: 2023Q1

REPORT INFORMATION
  Report Type: Report from Study
  Country: ES (occurrence: ES)
  Receive Date: 20211001
  Receipt Date: 20230323
  Transmission Date: 20230418
  Serious: Yes (Other)
  Sender: FDA-Public Use
  Company Number: ES-TAKEDA-2021TUS060547

PATIENT
  Age: 4 Year
  Sex: Male

DRUGS (13)
  1. TEDUGLUTIDE [Suspect]
     Active Substance: TEDUGLUTIDE
     Indication: Short-bowel syndrome
     Dosage: 0.8 MILLIGRAM, QD
     Route: 042
  2. TEDUGLUTIDE [Suspect]
     Active Substance: TEDUGLUTIDE
     Indication: Short-bowel syndrome
     Dosage: 0.8 MILLIGRAM, QD
     Route: 042
  3. TEDUGLUTIDE [Suspect]
     Active Substance: TEDUGLUTIDE
     Indication: Short-bowel syndrome
     Dosage: 0.8 MILLIGRAM, QD
     Route: 042
  4. TEDUGLUTIDE [Suspect]
     Active Substance: TEDUGLUTIDE
     Indication: Short-bowel syndrome
     Dosage: 0.8 MILLIGRAM, QD
     Route: 042
  5. BEMIPARIN SODIUM [Concomitant]
     Active Substance: BEMIPARIN SODIUM
     Indication: Product used for unknown indication
     Dosage: 1000 INTERNATIONAL UNIT, QD
     Route: 058
     Dates: start: 20200303, end: 20210710
  6. Protovit [Concomitant]
     Indication: Hypovitaminosis
     Dosage: 12 GTT DROPS, QD
     Route: 048
     Dates: start: 20200827, end: 20210303
  7. CHOLESTYRAMINE [Concomitant]
     Active Substance: CHOLESTYRAMINE
     Indication: Product used for unknown indication
     Dosage: 1 GRAM, TID
     Route: 048
  8. METRONIDAZOLE [Concomitant]
     Active Substance: METRONIDAZOLE
     Indication: Gastroenteritis
     Dosage: 75 MILLIGRAM, TID
     Route: 048
     Dates: start: 20210708, end: 20210714
  9. FERROSOL [Concomitant]
     Indication: Iron deficiency
     Dosage: 2 MILLILITER, QD
     Route: 048
     Dates: start: 20220330
  10. VITAMIN D [Concomitant]
     Active Substance: VITAMIN D NOS
     Indication: Vitamin D deficiency
     Dosage: 800 INTERNATIONAL UNIT, QD
     Route: 048
     Dates: start: 20220330
  11. VENOFER [Concomitant]
     Active Substance: IRON SUCROSE
     Indication: Iron deficiency
     Dosage: 100.00 MILLIGRAM, SINGLE
     Route: 042
     Dates: start: 20210611, end: 20210611
  12. VENOFER [Concomitant]
     Active Substance: IRON SUCROSE
     Dosage: 100.00 MILLIGRAM, SINGLE
     Route: 042
     Dates: start: 20200821, end: 20200821
  13. IRON [Concomitant]
     Active Substance: IRON
     Indication: Iron deficiency
     Dosage: UNK UNK, SINGLE
     Route: 042
     Dates: start: 20221026, end: 20221026

REACTIONS (1)
  - Gastrointestinal haemorrhage [Not Recovered/Not Resolved]

NARRATIVE: CASE EVENT DATE: 20210301
